FAERS Safety Report 7657168-3 (Version None)
Quarter: 2011Q3

REPORT INFORMATION
  Report Type: 
  Country: None (occurrence: None)
  Receive Date: 20110804
  Receipt Date: 20100106
  Transmission Date: 20111222
  Serious: Yes (Death, Hospitalization, Other)
  Sender: FDA-Public Use
  Company Number: PHHY2009TW60823

PATIENT
  Sex: Male

DRUGS (5)
  1. SUTENT [Suspect]
     Indication: GASTROINTESTINAL STROMAL TUMOUR
     Dosage: 3 DF, UNK
     Route: 048
     Dates: start: 20100201
  2. GLEEVEC [Suspect]
     Dosage: 800 MG, UNK
     Dates: start: 20060801
  3. SUTENT [Suspect]
     Dosage: 25 MG, UNK
     Route: 048
  4. SUTENT [Suspect]
     Dosage: 2 DF, 100 MG
     Route: 048
  5. GLEEVEC [Suspect]
     Dosage: 4 DF, DAILY

REACTIONS (15)
  - ARTHRITIS [None]
  - PNEUMONIA [None]
  - NAUSEA [None]
  - MUSCULOSKELETAL STIFFNESS [None]
  - ABDOMINAL DISTENSION [None]
  - DRY SKIN [None]
  - PALPITATIONS [None]
  - PYREXIA [None]
  - HERNIA [None]
  - DEATH [None]
  - VOMITING [None]
  - ABDOMINAL PAIN [None]
  - DYSPNOEA [None]
  - TUMOUR COMPRESSION [None]
  - ASTHENIA [None]
